FAERS Safety Report 9990117 (Version 1)
Quarter: 2014Q1

REPORT INFORMATION
  Report Type: Report from Study
  Country: US (occurrence: US)
  Receive Date: 20140310
  Receipt Date: 20140310
  Transmission Date: 20141002
  Serious: No
  Sender: FDA-Public Use
  Company Number: US-ABBVIE-13P-163-1132346-00

PATIENT
  Age: 67 Year
  Sex: Female

DRUGS (16)
  1. HUMIRA [Suspect]
     Indication: RHEUMATOID ARTHRITIS
     Dates: start: 20130612
  2. SENIOR MULTIVITAMINS [Concomitant]
     Indication: PRODUCT USED FOR UNKNOWN INDICATION
  3. DILTIAZEM ER [Concomitant]
     Indication: HYPERTENSION
  4. HYDROCHLOROTHIAZIDE [Concomitant]
     Indication: HYPERTENSION
  5. ASPIRIN [Concomitant]
     Indication: CARDIAC DISORDER
  6. LIPITOR [Concomitant]
     Indication: BLOOD CHOLESTEROL
  7. NIASPAN [Concomitant]
     Indication: BLOOD CHOLESTEROL
  8. SINGULAIR [Concomitant]
     Indication: ASTHMA
  9. LEVOTHROID [Concomitant]
     Indication: HYPOTHYROIDISM
  10. FOLIC ACID [Concomitant]
     Indication: ARTHRITIS
  11. METHOTREXATE [Concomitant]
     Indication: ARTHRITIS
     Dosage: PILLS
  12. PREDNISONE [Concomitant]
     Indication: PRODUCT USED FOR UNKNOWN INDICATION
  13. PROVENTIL HFA [Concomitant]
     Indication: ASTHMA
  14. ACTIFED [Concomitant]
     Indication: ANTIALLERGIC THERAPY
  15. ADVIL [Concomitant]
     Indication: PAIN
  16. KEFLEX [Concomitant]
     Indication: PROPHYLAXIS
     Dosage: AN HOUR BEFORE ANY DENTAL WORK

REACTIONS (1)
  - Injection site haemorrhage [Recovering/Resolving]
